FAERS Safety Report 8179137-X (Version None)
Quarter: 2012Q1

REPORT INFORMATION
  Report Type: 
  Country: None (occurrence: None)
  Receive Date: 20120227
  Receipt Date: 20120214
  Transmission Date: 20120608
  Serious: Yes (Other)
  Sender: FDA-Public Use
  Company Number: 1000028545

PATIENT
  Age: 52 Year
  Sex: Male

DRUGS (2)
  1. LEXAPRO [Suspect]
     Indication: DEPRESSION
     Dosage: 10 MG (10 MG, 1 IN 1 D), ORAL
     Route: 048
  2. LANSOPRAZOLE [Concomitant]

REACTIONS (5)
  - TREMOR [None]
  - AGITATION [None]
  - PARAESTHESIA [None]
  - DRUG WITHDRAWAL SYNDROME [None]
  - ERECTILE DYSFUNCTION [None]
